FAERS Safety Report 8813266 (Version 1)
Quarter: 2012Q4

REPORT INFORMATION
  Report Type: 
  Country: US (occurrence: US)
  Receive Date: 20120927
  Receipt Date: 20120927
  Transmission Date: 20130627
  Serious: No
  Sender: FDA-Public Use
  Company Number: US-AMGEN-USASP2012042785

PATIENT
  Sex: Female

DRUGS (7)
  1. PROLIA [Suspect]
     Indication: OSTEOPOROSIS POSTMENOPAUSAL
     Dates: start: 20120604
  2. ANTIHYPERTENSIVES [Concomitant]
  3. MULTIVITAMIN                       /00097801/ [Concomitant]
  4. CALCIUM MAGNESIUM [Concomitant]
  5. VITAMIN D /00107901/ [Concomitant]
  6. VITAMIN C                          /00008001/ [Concomitant]
  7. VITAMIN K                          /00032401/ [Concomitant]

REACTIONS (8)
  - Rash pruritic [Not Recovered/Not Resolved]
  - Acne [Not Recovered/Not Resolved]
  - Chest pain [Not Recovered/Not Resolved]
  - Bone pain [Not Recovered/Not Resolved]
  - Pain [Not Recovered/Not Resolved]
  - Musculoskeletal pain [Not Recovered/Not Resolved]
  - Neck pain [Not Recovered/Not Resolved]
  - Pain in extremity [Not Recovered/Not Resolved]
